FAERS Safety Report 5914944-2 (Version None)
Quarter: 2008Q4

REPORT INFORMATION
  Report Type: 
  Country: None (occurrence: None)
  Receive Date: 20081010
  Receipt Date: 20080929
  Transmission Date: 20090506
  Serious: Yes (Other)
  Sender: FDA-Public Use
  Company Number: NL-JNJFOC-20081000224

PATIENT
  Age: 58 Year
  Sex: Male

DRUGS (2)
  1. REMICADE [Suspect]
     Route: 042
  2. REMICADE [Suspect]
     Indication: RHEUMATOID ARTHRITIS
     Dosage: IN 2002, ON UNSPECIFIED DATES THE PATIENT RECEIVED 3 INFUSIONS OF INFLIXIMAB.
     Route: 042

REACTIONS (2)
  - ASPERGILLOMA [None]
  - PAPILLOEDEMA [None]
